FAERS Safety Report 8564500-5 (Version None)
Quarter: 2012Q3

REPORT INFORMATION
  Report Type: 
  Country: None (occurrence: None)
  Receive Date: 20120803
  Receipt Date: 20120731
  Transmission Date: 20120928
  Serious: Yes (Other)
  Sender: FDA-Public Use
  Company Number: AU-PFIZER INC-2012185849

PATIENT
  Age: 94 Year
  Sex: Female

DRUGS (2)
  1. MIRTAZAPINE [Suspect]
     Dosage: UNK
  2. ZOLOFT [Suspect]
     Dosage: 50 MG, 1X/DAY

REACTIONS (7)
  - ABNORMAL BEHAVIOUR [None]
  - AGITATION [None]
  - CRYING [None]
  - RESPIRATORY RATE INCREASED [None]
  - SLEEP DISORDER [None]
  - PARANOIA [None]
  - ANXIETY [None]
